FAERS Safety Report 5096260-7 (Version None)
Quarter: 2006Q3

REPORT INFORMATION
  Report Type: 
  Country: None (occurrence: None)
  Receive Date: 20060731
  Receipt Date: 20060429
  Transmission Date: 20061208
  Serious: No
  Sender: FDA-Public Use
  Company Number: 2006PV013008

PATIENT
  Age: 68 Year
  Sex: Female
  Weight: 81.1939 kg

DRUGS (6)
  1. BYETTA [Suspect]
     Indication: DIABETES MELLITUS NON-INSULIN-DEPENDENT
     Dosage: 5 MCG BID SC
     Route: 058
     Dates: start: 20060329
  2. LANTUS [Concomitant]
  3. NOVOLOG [Concomitant]
  4. NOVOLOG [Concomitant]
  5. NOVOLOG [Concomitant]
  6. GLYBURIDE [Concomitant]

REACTIONS (2)
  - CONSTIPATION [None]
  - NAUSEA [None]
